FAERS Safety Report 5264923-6 (Version None)
Quarter: 2007Q1

REPORT INFORMATION
  Report Type: 
  Country: None (occurrence: None)
  Receive Date: 20070314
  Receipt Date: 20070227
  Transmission Date: 20070707
  Serious: Yes (Other)
  Sender: FDA-Public Use
  Company Number: BR-AMGEN-UK212821

PATIENT
  Age: 24 Year
  Sex: Female
  Weight: 47 kg

DRUGS (1)
  1. GRANULOKINE [Suspect]
     Indication: NEUTROPENIA
     Route: 065
     Dates: start: 20070221

REACTIONS (5)
  - ABDOMINAL PAIN UPPER [None]
  - NECK PAIN [None]
  - PAIN IN EXTREMITY [None]
  - PHARYNGEAL OEDEMA [None]
  - SWELLING FACE [None]
